FAERS Safety Report 6582365-8 (Version None)
Quarter: 2010Q1

REPORT INFORMATION
  Report Type: 
  Country: None (occurrence: None)
  Receive Date: 20100212
  Receipt Date: 20100212
  Transmission Date: 20100710
  Serious: Yes (Hospitalization)
  Sender: FDA-Public Use
  Company Number: None

PATIENT
  Age: 77 Year
  Sex: Male
  Weight: 71 kg

DRUGS (2)
  1. GALANTAMINE HYDROBROMIDE [Suspect]
     Indication: DEMENTIA
     Dosage: 4 MG BID PO
     Route: 048
     Dates: start: 20091216, end: 20100120
  2. TOPIRAMATE [Suspect]
     Indication: AFFECTIVE DISORDER
     Dosage: 25 MG BID PO
     Route: 048
     Dates: start: 20080220, end: 20100120

REACTIONS (9)
  - ASTHENIA [None]
  - BLOOD CREATININE INCREASED [None]
  - BLOOD UREA INCREASED [None]
  - DEHYDRATION [None]
  - DEPRESSED LEVEL OF CONSCIOUSNESS [None]
  - HYPOPHAGIA [None]
  - RASH GENERALISED [None]
  - URINARY TRACT INFECTION [None]
  - URTICARIA [None]
